FAERS Safety Report 24366185 (Version 1)
Quarter: 2024Q3

REPORT INFORMATION
  Report Type: Spontaneous
  Country: GB (occurrence: GB)
  Receive Date: 20240926
  Receipt Date: 20240926
  Transmission Date: 20241017
  Serious: Yes (Other)
  Sender: BAXTER
  Company Number: GB-MHRA-TPP2549368C9495261YC1726502467565

PATIENT
  Age: 32 Year
  Sex: Female
  Weight: 87 kg

DRUGS (13)
  1. ONDANSETRON [Suspect]
     Active Substance: ONDANSETRON
     Dosage: DOSAGE TEXT: 4MG/2ML, (SOLUTION FOR INJECTION AMPOULES)
     Route: 042
     Dates: start: 20240823
  2. NITROFURANTOIN [Concomitant]
     Active Substance: NITROFURANTOIN
     Indication: Ill-defined disorder
     Dosage: DOSAGE TEXT: TAKE ONE CAPSULE TWICE DAILY FOR 3 DAYS, TO TREAT INFECTION, 1 DOSAGE FORM,12 H (HOURS)
     Dates: start: 20240823, end: 20240826
  3. AMOXICILLIN\CLAVULANATE POTASSIUM [Concomitant]
     Active Substance: AMOXICILLIN\CLAVULANATE POTASSIUM
     Indication: Ill-defined disorder
     Dosage: DOSAGE TEXT: TAKE ONE 3 TIMES/DAY, 1 DOSAGE FORM, 8 H (HOURS), PHARMACEUTICAL DOSAGE FROM (TPP YC)
     Route: 065
     Dates: start: 20240808, end: 20240815
  4. CYCLIZINE [Concomitant]
     Active Substance: CYCLIZINE
     Indication: Ill-defined disorder
     Dosage: DOSAGE TEXT: TAKE ONE UPTO THREE TIMES A DAY FOR SICKNESS, PHARMACEUTICAL DOSAGE FROM (TPP YC)
     Route: 065
     Dates: start: 20240808, end: 20240822
  5. OMEPRAZOLE [Concomitant]
     Active Substance: OMEPRAZOLE
     Indication: Ill-defined disorder
     Dosage: DOSAGE TEXT: TAKE ONE DAILY, 1 (DOSAGE FORM), 1 D (DAY), PHARMACEUTICAL DOSAGE FROM (TPP YC)
     Route: 065
     Dates: start: 20240906
  6. CLOTRIMAZOLE [Concomitant]
     Active Substance: CLOTRIMAZOLE
     Indication: Ill-defined disorder
     Dosage: DOSAGE TEXT: APPLY TWO TO THREE TIMES A DAY, TO TREAT FUNGAL. PHARMACEUTICAL DOSAGE FROM (TPP YC)
     Route: 065
     Dates: start: 20240823, end: 20240830
  7. FLUCONAZOLE [Concomitant]
     Active Substance: FLUCONAZOLE
     Indication: Ill-defined disorder
     Dosage: DOSAGE TEXT: TAKE ONE CAPSULE, PHARMACEUTICAL DOSAGE FROM (CAPSULE)
     Dates: start: 20240823, end: 20240824
  8. QUETIAPINE FUMARATE [Concomitant]
     Active Substance: QUETIAPINE FUMARATE
     Indication: Ill-defined disorder
     Dosage: DOSAGE TEXT: ONE AT NIGHT, AND 25 MG, PHARMACEUTICAL DOSAGE FROM (TPP YC) TABLETS 5 TIMES A DAY
     Route: 065
     Dates: start: 20230810
  9. MIRTAZAPINE [Concomitant]
     Active Substance: MIRTAZAPINE
     Indication: Ill-defined disorder
     Dosage: DOSAGE TEXT: TAKE ONE AT NIGHT, 1 D (DAY), PHARMACEUTICAL DOSAGE FROM (TPP YC)
     Dates: start: 20230810
  10. PROMETHAZINE HYDROCHLORIDE [Concomitant]
     Active Substance: PROMETHAZINE HYDROCHLORIDE
     Indication: Ill-defined disorder
     Dosage: DOSAGE TEXT: 1 AT NIGHT, WHEN NECESSARY, PHARMACEUTICAL DOSAGE FROM (TPP YC)
     Route: 065
     Dates: start: 20230810
  11. QUETIAPINE [Concomitant]
     Active Substance: QUETIAPINE
     Indication: Ill-defined disorder
     Dosage: DOSAGE TEXT: 5 TIMES A DAY WHEN NEEDED, PHARMACEUTICAL DOSAGE FROM (TPP YC)
     Route: 065
     Dates: start: 20230810
  12. ZOPICLONE [Concomitant]
     Active Substance: ZOPICLONE
     Indication: Ill-defined disorder
     Dosage: DOSAGE TEXT: TAKE ONE TO TWO AT NIGHT, PHARMACEUTICAL DOSAGE FROM (TPP YC)
     Route: 065
     Dates: start: 20230810
  13. VENLAFAXINE HYDROCHLORIDE [Concomitant]
     Active Substance: VENLAFAXINE HYDROCHLORIDE
     Indication: Ill-defined disorder
     Dosage: DOSAGE TEXT: TAKE ONE DAILY IN THE MORNING, PROLONGED RELEASE, PHARMACEUTICAL DOSAGE FROM (TPP YC)
     Route: 065
     Dates: start: 20230904

REACTIONS (2)
  - Swelling face [Recovered/Resolved]
  - Nausea [Unknown]
